FAERS Safety Report 22002255 (Version 1)
Quarter: 2023Q1

REPORT INFORMATION
  Report Type: Spontaneous
  Country: CN (occurrence: None)
  Receive Date: 20230217
  Receipt Date: 20230217
  Transmission Date: 20230418
  Serious: Yes (Other)
  Sender: FDA-Public Use
  Company Number: CN-ROCHE-3287250

PATIENT
  Age: 55 Year
  Sex: Female

DRUGS (27)
  1. MABTHERA [Suspect]
     Active Substance: RITUXIMAB
     Indication: Diffuse large B-cell lymphoma
     Dosage: R-CHOP
     Route: 065
  2. MABTHERA [Suspect]
     Active Substance: RITUXIMAB
     Dosage: C-R-DICE FOR 1 CYCLE
     Route: 065
  3. MABTHERA [Suspect]
     Active Substance: RITUXIMAB
     Dosage: C-R + DEXAMETHASONE FOR 1 CYCLE
     Route: 065
  4. MABTHERA [Suspect]
     Active Substance: RITUXIMAB
     Dosage: C + R-DICE FOR 2 CYCLES
     Route: 065
  5. MABTHERA [Suspect]
     Active Substance: RITUXIMAB
     Dosage: R-GDP
     Route: 065
  6. VINDESINE [Concomitant]
     Active Substance: VINDESINE
     Indication: Diffuse large B-cell lymphoma
     Dosage: R-CHOP
  7. CYCLOPHOSPHAMIDE [Concomitant]
     Active Substance: CYCLOPHOSPHAMIDE
     Indication: Diffuse large B-cell lymphoma
     Dosage: R-CHOP
  8. CYCLOPHOSPHAMIDE [Concomitant]
     Active Substance: CYCLOPHOSPHAMIDE
     Dosage: FC
     Dates: start: 20211113
  9. DOXORUBICIN HYDROCHLORIDE [Concomitant]
     Active Substance: DOXORUBICIN HYDROCHLORIDE
     Indication: Diffuse large B-cell lymphoma
     Dosage: R-CHOP
  10. DEXAMETHASONE [Concomitant]
     Active Substance: DEXAMETHASONE
     Indication: Diffuse large B-cell lymphoma
     Dosage: R-CHOP
  11. DEXAMETHASONE [Concomitant]
     Active Substance: DEXAMETHASONE
     Dosage: C-R-DICE FOR 1 CYCLE
  12. DEXAMETHASONE [Concomitant]
     Active Substance: DEXAMETHASONE
     Dosage: C-R + DEXAMETHASONE FOR 1 CYCLE
  13. DEXAMETHASONE [Concomitant]
     Active Substance: DEXAMETHASONE
     Dosage: C + R-DICE FOR 2 CYCLES
  14. DEXAMETHASONE [Concomitant]
     Active Substance: DEXAMETHASONE
     Dosage: R-GDP
  15. TUCIDINOSTAT [Concomitant]
     Active Substance: TUCIDINOSTAT
     Indication: Diffuse large B-cell lymphoma
     Dosage: C-R-DICE FOR 1 CYCLE
  16. TUCIDINOSTAT [Concomitant]
     Active Substance: TUCIDINOSTAT
     Dosage: C-R + DEXAMETHASONE FOR 1 CYCLE
  17. TUCIDINOSTAT [Concomitant]
     Active Substance: TUCIDINOSTAT
     Dosage: C + R-DICE FOR 2 CYCLES
  18. CISPLATIN [Concomitant]
     Active Substance: CISPLATIN
     Indication: Diffuse large B-cell lymphoma
     Dosage: C-R-DICE FOR 1 CYCLE
  19. CISPLATIN [Concomitant]
     Active Substance: CISPLATIN
     Dosage: C + R-DICE FOR 2 CYCLES
  20. CISPLATIN [Concomitant]
     Active Substance: CISPLATIN
     Dosage: R-GDP
  21. ETOPOSIDE [Concomitant]
     Active Substance: ETOPOSIDE
     Indication: Diffuse large B-cell lymphoma
     Dosage: C-R-DICE FOR 1 CYCLE
  22. ETOPOSIDE [Concomitant]
     Active Substance: ETOPOSIDE
     Dosage: C + R-DICE FOR 2 CYCLES
  23. IFOSFAMIDE [Concomitant]
     Active Substance: IFOSFAMIDE
     Indication: Diffuse large B-cell lymphoma
     Dosage: C-R-DICE FOR 1 CYCLE
  24. IFOSFAMIDE [Concomitant]
     Active Substance: IFOSFAMIDE
     Dosage: C + R-DICE FOR 2 CYCLES
  25. GEMCITABINE [Concomitant]
     Active Substance: GEMCITABINE
     Indication: Diffuse large B-cell lymphoma
     Dosage: R-GDP
  26. ORELABRUTINIB [Concomitant]
     Active Substance: ORELABRUTINIB
     Indication: Diffuse large B-cell lymphoma
  27. FLUDARABINE [Concomitant]
     Active Substance: FLUDARABINE PHOSPHATE
     Indication: Diffuse large B-cell lymphoma
     Dosage: FC
     Dates: start: 20211113

REACTIONS (5)
  - Haematotoxicity [Unknown]
  - Gastrointestinal disorder [Unknown]
  - Paraplegia [Unknown]
  - Urinary incontinence [Unknown]
  - Anal incontinence [Unknown]
